FAERS Safety Report 4803660-6 (Version None)
Quarter: 2005Q4

REPORT INFORMATION
  Report Type: 
  Country: None (occurrence: None)
  Receive Date: 20051014
  Receipt Date: 20050930
  Transmission Date: 20060501
  Serious: Yes (Life-Threatening, Hospitalization)
  Sender: FDA-Public Use
  Company Number: 2005S1008348

PATIENT
  Age: 67 Year
  Sex: Male

DRUGS (2)
  1. APOMORPHINE HYDROCHLORIDE (APOMORPHINE HYDROCHLORIDE) [Suspect]
     Indication: PARKINSON'S DISEASE
     Dosage: SEE IMAGE, SUBCU
     Route: 058
     Dates: start: 20050706, end: 20050706
  2. DOMPERIDONE [Concomitant]

REACTIONS (7)
  - ATRIAL FIBRILLATION [None]
  - BLOOD PRESSURE ORTHOSTATIC DECREASED [None]
  - CARDIAC ARREST [None]
  - FALL [None]
  - HYPOTENSION [None]
  - RESPIRATORY ARREST [None]
  - VOMITING [None]
